FAERS Safety Report 7107295-4 (Version None)
Quarter: 2010Q4

REPORT INFORMATION
  Report Type: 
  Country: None (occurrence: None)
  Receive Date: 20101116
  Receipt Date: 20101104
  Transmission Date: 20110411
  Serious: Yes (Death, Hospitalization)
  Sender: FDA-Public Use
  Company Number: SE-GENENTECH-308819

PATIENT
  Age: 72 Year
  Sex: Female

DRUGS (11)
  1. MABTHERA [Suspect]
     Indication: CHRONIC LYMPHOCYTIC LEUKAEMIA
     Dosage: UNK
     Route: 042
     Dates: start: 20100101
  2. DOXORUBICIN HCL [Suspect]
     Indication: CHRONIC LYMPHOCYTIC LEUKAEMIA
     Dosage: UNK
     Route: 065
     Dates: start: 20100101
  3. ONCOVIN [Suspect]
     Indication: CHRONIC LYMPHOCYTIC LEUKAEMIA
     Dosage: UNK
     Dates: start: 20100101
  4. SENDOXAN [Suspect]
     Indication: CHRONIC LYMPHOCYTIC LEUKAEMIA
     Dosage: UNK
     Route: 065
     Dates: start: 20100101
  5. PREDNISOLONE [Suspect]
     Indication: CHRONIC LYMPHOCYTIC LEUKAEMIA
     Dosage: UNK
     Route: 065
     Dates: start: 20100101
  6. ACETYLCYSTEINE [Concomitant]
     Indication: PRODUCT USED FOR UNKNOWN INDICATION
  7. OMEPRAZOLE [Concomitant]
     Indication: PRODUCT USED FOR UNKNOWN INDICATION
  8. ACYCLOVIR SODIUM [Concomitant]
     Indication: PRODUCT USED FOR UNKNOWN INDICATION
  9. COCILLANA-ETYFIN [Concomitant]
     Indication: PRODUCT USED FOR UNKNOWN INDICATION
  10. PREDNISOLONE [Concomitant]
     Indication: PRODUCT USED FOR UNKNOWN INDICATION
  11. ALLOPURINOL [Concomitant]
     Indication: PRODUCT USED FOR UNKNOWN INDICATION

REACTIONS (1)
  - PROGRESSIVE MULTIFOCAL LEUKOENCEPHALOPATHY [None]
